FAERS Safety Report 7245249-8 (Version None)
Quarter: 2011Q1

REPORT INFORMATION
  Report Type: 
  Country: None (occurrence: None)
  Receive Date: 20110126
  Receipt Date: 20110120
  Transmission Date: 20110831
  Serious: Yes (Other)
  Sender: FDA-Public Use
  Company Number: US-SANOFI-AVENTIS-2010SA070687

PATIENT
  Sex: Female
  Weight: 65 kg

DRUGS (11)
  1. LANTUS [Suspect]
     Indication: TYPE 2 DIABETES MELLITUS
     Dosage: DOSE:20 UNIT(S)
     Route: 058
     Dates: start: 20050101
  2. OPTICLICK [Suspect]
     Indication: TYPE 2 DIABETES MELLITUS
     Dates: start: 20050101
  3. GLIMEPIRIDE [Concomitant]
  4. DILTIAZEM [Concomitant]
  5. BENICAR [Concomitant]
  6. WELCHOL [Concomitant]
  7. JANUVIA [Concomitant]
  8. TRIAMTERENE [Concomitant]
  9. KLOR-CON [Concomitant]
  10. CLONIDINE [Concomitant]
  11. PLAVIX [Concomitant]

REACTIONS (5)
  - ARTHROPATHY [None]
  - BLOOD GLUCOSE DECREASED [None]
  - LUNG NEOPLASM MALIGNANT [None]
  - CHEMOTHERAPY [None]
  - NERVE INJURY [None]
